FAERS Safety Report 19408132 (Version 1)
Quarter: 2021Q2

REPORT INFORMATION
  Report Type: Spontaneous
  Country: FR (occurrence: FR)
  Receive Date: 20210611
  Receipt Date: 20210611
  Transmission Date: 20210717
  Serious: Yes (Other)
  Sender: FDA-Public Use
  Company Number: FR-PFIZER INC-2021637375

PATIENT
  Sex: Female

DRUGS (1)
  1. FLUCONAZOLE. [Suspect]
     Active Substance: FLUCONAZOLE
     Dosage: UNK
     Route: 065

REACTIONS (8)
  - Dry mouth [Unknown]
  - Tongue eruption [Unknown]
  - Fatigue [Unknown]
  - Headache [Unknown]
  - Liver disorder [Unknown]
  - Abdominal pain upper [Unknown]
  - Suicidal ideation [Unknown]
  - Tachycardia [Unknown]
